FAERS Safety Report 4645005-0 (Version None)
Quarter: 2005Q2

REPORT INFORMATION
  Report Type: 
  Country: None (occurrence: None)
  Receive Date: 20050426
  Receipt Date: 20040511
  Transmission Date: 20051028
  Serious: Yes (Disabling)
  Sender: FDA-Public Use
  Company Number: US-ROCHE-367621

PATIENT
  Age: 35 Year
  Sex: Male
  Weight: 109.8 kg

DRUGS (12)
  1. LARIAM [Suspect]
     Indication: MALARIA PROPHYLAXIS
     Route: 048
     Dates: start: 20000515, end: 20000615
  2. BACTRIM [Concomitant]
     Indication: ENTERITIS INFECTIOUS
     Dates: start: 20000513
  3. IMODIUM [Concomitant]
     Indication: ENTERITIS INFECTIOUS
     Dates: start: 20000513
  4. COMPAZINE [Concomitant]
     Indication: ENTERITIS INFECTIOUS
     Dosage: ON 18 APR 2001, THERAPY REPORTED AS TWICE DAILY.
     Dates: start: 20000513
  5. ANTIBIOTICS NOS [Concomitant]
     Indication: EPIDIDYMITIS
     Dates: start: 20000731
  6. ANTIVERT [Concomitant]
     Dates: start: 20000615
  7. PREDNISONE [Concomitant]
     Indication: VESTIBULAR DISORDER
     Dosage: BY TAPER.
     Dates: start: 20010205
  8. VALIUM [Concomitant]
     Indication: VESTIBULAR DISORDER
     Dosage: ON 18 APR 2001, THERAPY REPORTED AS: AS NEEDED.
     Dates: start: 20010205
  9. PHENERGAN [Concomitant]
     Dates: start: 20010222
  10. BIAXIN [Concomitant]
     Dates: start: 20020409
  11. ADVIL [Concomitant]
     Dates: start: 20020912
  12. AMBIEN [Concomitant]
     Dates: start: 20020930

REACTIONS (46)
  - ABDOMINAL PAIN [None]
  - ABNORMAL DREAMS [None]
  - AGITATION [None]
  - AMNESIA [None]
  - ANXIETY DISORDER [None]
  - BLOOD PRESSURE INCREASED [None]
  - BLOOD UREA INCREASED [None]
  - CHEST PAIN [None]
  - COLITIS [None]
  - DEPRESSION [None]
  - DIARRHOEA [None]
  - DISORIENTATION [None]
  - DISTURBANCE IN ATTENTION [None]
  - DIZZINESS [None]
  - ENTERITIS [None]
  - EPIDIDYMITIS [None]
  - EYE PAIN [None]
  - FATIGUE [None]
  - GAIT DISTURBANCE [None]
  - HEADACHE [None]
  - HYPOAESTHESIA [None]
  - INNER EAR DISORDER [None]
  - INSOMNIA [None]
  - IRRITABLE BOWEL SYNDROME [None]
  - LYMPHOCYTE COUNT DECREASED [None]
  - MEMORY IMPAIRMENT [None]
  - MONOCYTE COUNT INCREASED [None]
  - MOOD SWINGS [None]
  - NAUSEA [None]
  - NERVOUSNESS [None]
  - NEUTROPHIL COUNT INCREASED [None]
  - NIGHT SWEATS [None]
  - NIGHTMARE [None]
  - NYSTAGMUS [None]
  - PAIN [None]
  - PAIN OF SKIN [None]
  - PHONOPHOBIA [None]
  - PHOTOPHOBIA [None]
  - PSYCHOTIC DISORDER [None]
  - RASH [None]
  - TESTICULAR PAIN [None]
  - TINNITUS [None]
  - VERTIGO [None]
  - VESTIBULAR DISORDER [None]
  - VISION BLURRED [None]
  - VOMITING [None]
